FAERS Safety Report 9225795 (Version 2)
Quarter: 2013Q2

REPORT INFORMATION
  Report Type: Spontaneous
  Country: BR (occurrence: BR)
  Receive Date: 20130411
  Receipt Date: 20130521
  Transmission Date: 20140414
  Serious: Yes (Hospitalization, Other)
  Sender: FDA-Public Use
  Company Number: BR-ASTRAZENECA-2013SE22598

PATIENT
  Age: 53 Year
  Sex: Female

DRUGS (4)
  1. VIMOVO [Suspect]
     Indication: RHEUMATOID ARTHRITIS
     Dosage: 500 MG/ 20 MG DAILY
     Route: 048
     Dates: start: 20130325, end: 20130328
  2. HYDROCHLOROTHIAZIDE [Concomitant]
     Indication: HYPERTENSION
     Dates: start: 2006
  3. LOSARTAN [Concomitant]
     Indication: HYPERTENSION
     Dates: start: 2010
  4. AMLODIPINE [Concomitant]
     Indication: HYPERTENSION
     Dates: start: 2011

REACTIONS (10)
  - Pneumonia [Recovered/Resolved]
  - Pruritus generalised [Recovered/Resolved]
  - Productive cough [Recovered/Resolved]
  - Vaginal discharge [Recovered/Resolved]
  - Restlessness [Recovered/Resolved]
  - Urethral haemorrhage [Recovered/Resolved]
  - Renal pain [Recovered/Resolved]
  - Headache [Recovered/Resolved]
  - Nausea [Recovered/Resolved]
  - Local swelling [Recovered/Resolved]
